FAERS Safety Report 13516971 (Version 2)
Quarter: 2017Q2

REPORT INFORMATION
  Report Type: Spontaneous
  Country: US (occurrence: US)
  Receive Date: 20170505
  Receipt Date: 20170619
  Transmission Date: 20170830
  Serious: No
  Sender: FDA-Public Use
  Company Number: US-PFIZER INC-2017199472

PATIENT
  Sex: Female

DRUGS (1)
  1. XELJANZ [Suspect]
     Active Substance: TOFACITINIB CITRATE
     Dosage: 5 MG, UNK

REACTIONS (6)
  - Finger deformity [Unknown]
  - Influenza like illness [Unknown]
  - Arthralgia [Unknown]
  - Weight decreased [Unknown]
  - Hand deformity [Unknown]
  - Back pain [Unknown]
